FAERS Safety Report 10531164 (Version 2)
Quarter: 2014Q4

REPORT INFORMATION
  Report Type: Spontaneous
  Country: IT (occurrence: IT)
  Receive Date: 20141021
  Receipt Date: 20141117
  Transmission Date: 20150529
  Serious: Yes (Hospitalization, Other)
  Sender: FDA-Public Use
  Company Number: IT-TEVA-516101ISR

PATIENT
  Age: 74 Year
  Sex: Female
  Weight: 46 kg

DRUGS (3)
  1. CONTROL 1 MG [Concomitant]
     Dosage: 1.5 MILLIGRAM DAILY;
     Route: 048
  2. AZILECT [Suspect]
     Active Substance: RASAGILINE MESYLATE
     Indication: PARKINSONISM
     Dosage: 1 MILLIGRAM DAILY;
     Route: 048
     Dates: start: 20071228, end: 20140901
  3. MADOPAR [Suspect]
     Active Substance: BENSERAZIDE HYDROCHLORIDE\LEVODOPA
     Indication: PARKINSONISM
     Dosage: 687.5 MILLIGRAM DAILY;
     Route: 048
     Dates: start: 20100707

REACTIONS (3)
  - Delirium [Unknown]
  - Hepatic encephalopathy [Not Recovered/Not Resolved]
  - Hepatic failure [Unknown]

NARRATIVE: CASE EVENT DATE: 20140801
